FAERS Safety Report 5270195-9 (Version None)
Quarter: 2007Q1

REPORT INFORMATION
  Report Type: 
  Country: None (occurrence: None)
  Receive Date: 20070320
  Receipt Date: 20070308
  Transmission Date: 20070707
  Serious: Yes (Other)
  Sender: FDA-Public Use
  Company Number: US-SANOFI-SYNTHELABO-A03200701917

PATIENT
  Age: 76 Year
  Sex: Male

DRUGS (8)
  1. HYDROXYCHLOROQUINE SULFATE [Suspect]
     Indication: RHEUMATOID ARTHRITIS
     Route: 048
  2. PREDNISONE [Concomitant]
  3. IRON SULFATETHIAMIN COMPOUND TAB [Concomitant]
     Dosage: UNK
     Route: 065
  4. AMITRIPTYLINE HCL [Concomitant]
     Dosage: UNK
     Route: 065
  5. ENALAPRIL MALEATE [Concomitant]
     Dosage: UNK
     Route: 065
  6. FUROSEMIDE [Concomitant]
     Dosage: UNK
     Route: 065
  7. SIMVASTATIN [Concomitant]
     Dosage: UNK
     Route: 065
  8. CARVEDILOL [Concomitant]
     Dosage: UNK
     Route: 065

REACTIONS (3)
  - MYELODYSPLASTIC SYNDROME [None]
  - PANCYTOPENIA [None]
  - REFRACTORY ANAEMIA WITH AN EXCESS OF BLASTS [None]
